FAERS Safety Report 4323942-4 (Version None)
Quarter: 2004Q1

REPORT INFORMATION
  Report Type: 
  Country: None (occurrence: None)
  Receive Date: 20040323
  Receipt Date: 20040309
  Transmission Date: 20041129
  Serious: Yes (Hospitalization)
  Sender: FDA-Public Use
  Company Number: AU-JNJFOC-20040302583

PATIENT
  Age: 72 Year
  Sex: Female

DRUGS (4)
  1. TRAMAL (TRAMADOL HYDROCHLORIDE) UNSPECIFIED [Suspect]
  2. SIMVASTATIN [Suspect]
     Dosage: 80 MG
  3. SALBUTAMOL (SALBUTAMOL) [Concomitant]
  4. ATROVENT [Concomitant]

REACTIONS (2)
  - BLOOD CREATINE INCREASED [None]
  - RHABDOMYOLYSIS [None]
